FAERS Safety Report 11230568 (Version 1)
Quarter: 2015Q2

REPORT INFORMATION
  Report Type: Spontaneous
  Country: None (occurrence: None)
  Receive Date: 20150630
  Receipt Date: 20150630
  Transmission Date: 20150821
  Serious: Yes (Hospitalization)
  Sender: FDA-Public Use
  Company Number: None

PATIENT
  Age: 53 Year
  Sex: Male
  Weight: 113.4 kg

DRUGS (4)
  1. NOVONORM [Concomitant]
     Active Substance: REPAGLINIDE
  2. GLUCOPHAGE [Concomitant]
     Active Substance: METFORMIN HYDROCHLORIDE
  3. EDEX [Suspect]
     Active Substance: ALPROSTADIL
     Dosage: 20CC INJECTION ONCE ONLY INJECTION PENILE
  4. CIALIS [Concomitant]
     Active Substance: TADALAFIL

REACTIONS (2)
  - Chest pain [None]
  - Palpitations [None]

NARRATIVE: CASE EVENT DATE: 20150625
